FAERS Safety Report 5931183-X (Version None)
Quarter: 2008Q4

REPORT INFORMATION
  Report Type: 
  Country: None (occurrence: None)
  Receive Date: 20081027
  Receipt Date: 20081020
  Transmission Date: 20090506
  Serious: Yes (Death)
  Sender: FDA-Public Use
  Company Number: PHHY2008IN25134

PATIENT
  Age: 26 Year
  Sex: Male

DRUGS (1)
  1. ASUNRA [Suspect]
     Dosage: 1 TAB OF 400 MG AND 1 TAB OF 100 MG

REACTIONS (1)
  - DEATH [None]
